FAERS Safety Report 6096536-0 (Version None)
Quarter: 2009Q1

REPORT INFORMATION
  Report Type: 
  Country: None (occurrence: None)
  Receive Date: 20090225
  Receipt Date: 20090225
  Transmission Date: 20090719
  Serious: Yes (Other)
  Sender: FDA-Public Use
  Company Number: None

PATIENT
  Sex: Female
  Weight: 58.9676 kg

DRUGS (1)
  1. TRAZODONE HCL [Suspect]
     Indication: SLEEP DISORDER
     Dosage: 1/4 TAB - 50 MG TAB 1 ONCE
     Dates: start: 20090209

REACTIONS (2)
  - MIDDLE INSOMNIA [None]
  - TINNITUS [None]
